FAERS Safety Report 6858181-6 (Version None)
Quarter: 2010Q3

REPORT INFORMATION
  Report Type: 
  Country: None (occurrence: None)
  Receive Date: 20100719
  Receipt Date: 20080201
  Transmission Date: 20110219
  Serious: No
  Sender: FDA-Public Use
  Company Number: US-PFIZER INC-2008011853

PATIENT
  Sex: Female
  Weight: 61.2 kg

DRUGS (5)
  1. CHANTIX [Suspect]
     Indication: SMOKING CESSATION THERAPY
     Dates: start: 20080127, end: 20080201
  2. ASPIRIN [Concomitant]
  3. CONTRACEPTIVE, UNSPECIFIED [Concomitant]
  4. POTASSIUM CHLORIDE [Concomitant]
  5. MELATONIN [Concomitant]
     Indication: SLEEP DISORDER

REACTIONS (7)
  - CRYING [None]
  - DYSPNOEA [None]
  - FEELING ABNORMAL [None]
  - GENERALISED ERYTHEMA [None]
  - IMPAIRED WORK ABILITY [None]
  - MALAISE [None]
  - PAIN [None]
